FAERS Safety Report 5584543-3 (Version None)
Quarter: 2008Q1

REPORT INFORMATION
  Report Type: 
  Country: None (occurrence: None)
  Receive Date: 20080103
  Receipt Date: 20071219
  Transmission Date: 20080703
  Serious: Yes (Hospitalization)
  Sender: FDA-Public Use
  Company Number: GXKR2007FR10893

PATIENT
  Age: 17 Year
  Sex: Male

DRUGS (7)
  1. VINCRISTINE [Suspect]
     Indication: B-CELL LYMPHOMA
  2. PREDNISONE [Suspect]
     Indication: B-CELL LYMPHOMA
  3. DOXORUBICIN HCL [Suspect]
     Indication: B-CELL LYMPHOMA
  4. METHOTREXATE [Suspect]
     Indication: B-CELL LYMPHOMA
  5. CYTARABINE [Suspect]
     Indication: B-CELL LYMPHOMA
  6. ETOPOSIDE [Suspect]
     Indication: B-CELL LYMPHOMA
  7. CYCLOPHOSPHAMIDE [Suspect]
     Indication: B-CELL LYMPHOMA

REACTIONS (5)
  - APLASIA [None]
  - CHOLESTASIS [None]
  - HEPATOSPLENIC CANDIDIASIS [None]
  - IMMUNE RECONSTITUTION SYNDROME [None]
  - NO THERAPEUTIC RESPONSE [None]
